FAERS Safety Report 9809345 (Version 4)
Quarter: 2014Q2

REPORT INFORMATION
  Report Type: Spontaneous
  Country: US (occurrence: US)
  Receive Date: 20140110
  Receipt Date: 20140509
  Transmission Date: 20141212
  Serious: Yes (Hospitalization, Other)
  Sender: FDA-Public Use
  Company Number: US-GILEAD-2014-0091862

PATIENT
  Sex: Female

DRUGS (24)
  1. LETAIRIS [Suspect]
     Indication: PULMONARY HYPERTENSION
     Dosage: 5 MG, QD
     Route: 065
     Dates: start: 20130926
  2. LETAIRIS [Suspect]
     Indication: MEDIASTINAL FIBROSIS
  3. LETAIRIS [Suspect]
     Indication: COR PULMONALE
  4. TRACLEER                           /01587701/ [Concomitant]
  5. REVATIO [Concomitant]
  6. ALBUTEROL                          /00139501/ [Concomitant]
  7. ALLOPURINOL [Concomitant]
  8. AMARYL [Concomitant]
  9. ATIVAN [Concomitant]
  10. COLCRYS [Concomitant]
  11. CYANOCOBALAMINE [Concomitant]
  12. DULERA [Concomitant]
  13. EPINEPHRINE [Concomitant]
  14. KLONOPIN [Concomitant]
  15. LASIX                              /00032601/ [Concomitant]
  16. LUMIGAN [Concomitant]
  17. NADOLOL [Concomitant]
  18. NEXIUM                             /01479302/ [Concomitant]
  19. NORVASC [Concomitant]
  20. OXYGEN [Concomitant]
  21. QNASL [Concomitant]
  22. RESTASIS [Concomitant]
  23. SYNTHROID [Concomitant]
  24. TOFRANIL [Concomitant]

REACTIONS (3)
  - Pneumonia [Unknown]
  - Fall [Unknown]
  - Dizziness [Unknown]
